FAERS Safety Report 14656736 (Version 1)
Quarter: 2018Q1

REPORT INFORMATION
  Report Type: Spontaneous
  Country: US (occurrence: US)
  Receive Date: 20180319
  Receipt Date: 20180319
  Transmission Date: 20180509
  Serious: No
  Sender: FDA-Public Use
  Company Number: US-SA-2017SA041398

PATIENT
  Age: 85 Year
  Sex: Female

DRUGS (2)
  1. NASACORT ALLERGY 24HR [Suspect]
     Active Substance: TRIAMCINOLONE ACETONIDE
     Indication: SECRETION DISCHARGE
     Dosage: FORM-SPRAY
     Route: 045
     Dates: start: 20161016
  2. NASACORT ALLERGY 24HR [Suspect]
     Active Substance: TRIAMCINOLONE ACETONIDE
     Indication: SECRETION DISCHARGE
     Route: 045
     Dates: start: 20160925

REACTIONS (2)
  - Pharyngeal erythema [Unknown]
  - Throat irritation [Unknown]

NARRATIVE: CASE EVENT DATE: 20161016
